FAERS Safety Report 6217212-7 (Version None)
Quarter: 2009Q2

REPORT INFORMATION
  Report Type: 
  Country: None (occurrence: None)
  Receive Date: 20090608
  Receipt Date: 20090527
  Transmission Date: 20091009
  Serious: Yes (Other)
  Sender: FDA-Public Use
  Company Number: JP-PFIZER INC-2009220527

PATIENT

DRUGS (3)
  1. NORVASC [Suspect]
     Dosage: UNK
     Route: 048
  2. GASMOTIN [Concomitant]
     Route: 048
  3. GASTROM [Concomitant]
     Route: 048

REACTIONS (1)
  - HAEMOGLOBIN DECREASED [None]
